FAERS Safety Report 6576693-X (Version None)
Quarter: 2010Q1

REPORT INFORMATION
  Report Type: 
  Country: None (occurrence: None)
  Receive Date: 20100210
  Receipt Date: 20100203
  Transmission Date: 20100710
  Serious: Yes (Hospitalization)
  Sender: FDA-Public Use
  Company Number: FR-ROCHE-657150

PATIENT
  Sex: Male

DRUGS (8)
  1. XELODA [Suspect]
     Route: 048
     Dates: start: 20090701, end: 20090701
  2. ASPEGIC 1000 [Concomitant]
     Dosage: DOSE: 250
  3. GLUCOPHAGE [Concomitant]
     Dosage: DOSE: 1000
  4. GLUCOR [Concomitant]
  5. AMAREL [Concomitant]
  6. TAMSULOSIN HCL [Concomitant]
  7. TARDYFERON [Concomitant]
  8. TEMESTA [Concomitant]

REACTIONS (7)
  - DEHYDRATION [None]
  - DIABETES MELLITUS INADEQUATE CONTROL [None]
  - DIABETIC KETOACIDOSIS [None]
  - DIARRHOEA [None]
  - MUCOSAL INFLAMMATION [None]
  - PALMAR-PLANTAR ERYTHRODYSAESTHESIA SYNDROME [None]
  - RENAL FAILURE [None]
